FAERS Safety Report 15713113 (Version 1)
Quarter: 2018Q4

REPORT INFORMATION
  Report Type: Spontaneous
  Country: AT (occurrence: AT)
  Receive Date: 20181212
  Receipt Date: 20181212
  Transmission Date: 20190205
  Serious: Yes (Other)
  Sender: FDA-Public Use
  Company Number: AT-AMGEN-AUTSP2018173368

PATIENT
  Age: 81 Year
  Sex: Female

DRUGS (1)
  1. XGEVA [Suspect]
     Active Substance: DENOSUMAB
     Indication: TOOTH EXTRACTION
     Dosage: 120 MG, QMO
     Route: 065

REACTIONS (2)
  - Osteonecrosis of jaw [Unknown]
  - Impaired healing [Unknown]

NARRATIVE: CASE EVENT DATE: 20181106
